FAERS Safety Report 4609542-7 (Version None)
Quarter: 2005Q1

REPORT INFORMATION
  Report Type: 
  Country: None (occurrence: None)
  Receive Date: 20050314
  Receipt Date: 20050314
  Transmission Date: 20050727
  Serious: No
  Sender: FDA-Public Use
  Company Number: None

PATIENT
  Age: 50 Year
  Sex: Female
  Weight: 70 kg

DRUGS (1)
  1. AMIODARONE    200MG [Suspect]
     Indication: ATRIAL FIBRILLATION
     Dosage: 200MG   DAILY
     Dates: start: 20040701, end: 20040714

REACTIONS (1)
  - LIVER FUNCTION TEST ABNORMAL [None]
